FAERS Safety Report 5513736-6 (Version None)
Quarter: 2007Q4

REPORT INFORMATION
  Report Type: 
  Country: None (occurrence: None)
  Receive Date: 20071113
  Receipt Date: 20071105
  Transmission Date: 20080405
  Serious: Yes (Other)
  Sender: FDA-Public Use
  Company Number: PHBS2007AR17826

PATIENT
  Age: 51 Year
  Sex: Female

DRUGS (4)
  1. POLPER B12 [Concomitant]
  2. CLONAZEPAM [Concomitant]
     Dosage: 1.5 MG PER DAY
     Dates: start: 20050101
  3. TEGRETOL [Suspect]
     Indication: MUSCLE SPASMS
     Dosage: 600 MG/DAY
     Dates: start: 20071002
  4. TEGRETOL [Suspect]
     Dosage: 400 MG/DAY
     Dates: start: 20071020, end: 20071023

REACTIONS (5)
  - CONDITION AGGRAVATED [None]
  - DYSKINESIA [None]
  - LYMPHADENOPATHY [None]
  - MUSCLE SPASMS [None]
  - PRURITUS GENERALISED [None]
